FAERS Safety Report 11266931 (Version 1)
Quarter: 2015Q3

REPORT INFORMATION
  Report Type: Spontaneous
  Country: US (occurrence: US)
  Receive Date: 20150713
  Receipt Date: 20150713
  Transmission Date: 20151125
  Serious: No
  Sender: FDA-Public Use
  Company Number: US-TEVA-577274USA

PATIENT
  Sex: Male

DRUGS (1)
  1. CLARAVIS [Suspect]
     Active Substance: ISOTRETINOIN
     Dates: start: 20141013, end: 20141118

REACTIONS (2)
  - Hepatic enzyme abnormal [Unknown]
  - Alcohol use [Unknown]

NARRATIVE: CASE EVENT DATE: 2014
